FAERS Safety Report 6850985-9 (Version None)
Quarter: 2010Q3

REPORT INFORMATION
  Report Type: 
  Country: None (occurrence: None)
  Receive Date: 20100716
  Receipt Date: 20071024
  Transmission Date: 20110219
  Serious: No
  Sender: FDA-Public Use
  Company Number: US-PFIZER INC-2007090680

PATIENT
  Sex: Female
  Weight: 90.9 kg

DRUGS (5)
  1. CHANTIX [Suspect]
     Indication: SMOKING CESSATION THERAPY
     Dates: start: 20071001
  2. SERTRALINE HCL [Concomitant]
  3. VALTREX [Concomitant]
  4. IRON [Concomitant]
  5. DRUG, UNSPECIFIED [Concomitant]
     Indication: GASTROOESOPHAGEAL REFLUX DISEASE

REACTIONS (1)
  - NAUSEA [None]
